FAERS Safety Report 20654907 (Version 1)
Quarter: 2022Q1

REPORT INFORMATION
  Report Type: Report from Study
  Country: US (occurrence: US)
  Receive Date: 20220330
  Receipt Date: 20220330
  Transmission Date: 20220423
  Serious: No
  Sender: FDA-Public Use
  Company Number: US-INCYTE CORPORATION-2022IN001694

PATIENT

DRUGS (5)
  1. JAKAFI [Suspect]
     Active Substance: RUXOLITINIB
     Indication: Janus kinase 2 mutation
     Dosage: 20 MILLIGRAM, QD
     Route: 048
     Dates: start: 2014
  2. LOSARTAN [Concomitant]
     Active Substance: LOSARTAN
     Indication: Product used for unknown indication
     Route: 065
  3. VITAMINS NOS [Concomitant]
     Active Substance: VITAMINS
     Indication: Product used for unknown indication
     Route: 065
  4. IRON [Concomitant]
     Active Substance: IRON
     Indication: Product used for unknown indication
     Route: 065
  5. ASPIRIN [Concomitant]
     Active Substance: ASPIRIN
     Indication: Product used for unknown indication
     Route: 065

REACTIONS (15)
  - COVID-19 [Unknown]
  - Night sweats [Unknown]
  - Blood cholesterol increased [Unknown]
  - Weight increased [Recovering/Resolving]
  - Haemoglobin decreased [Unknown]
  - Feeling abnormal [Unknown]
  - Constipation [Unknown]
  - Memory impairment [Unknown]
  - Feeling cold [Unknown]
  - Diarrhoea [Unknown]
  - Mental disorder [Unknown]
  - Limb injury [Unknown]
  - Hypoaesthesia [Unknown]
  - Post-traumatic stress disorder [Unknown]
  - Off label use [Unknown]

NARRATIVE: CASE EVENT DATE: 20140101
